FAERS Safety Report 8596347-8 (Version None)
Quarter: 2012Q3

REPORT INFORMATION
  Report Type: 
  Country: None (occurrence: None)
  Receive Date: 20120815
  Receipt Date: 20120806
  Transmission Date: 20120928
  Serious: Yes (Hospitalization)
  Sender: FDA-Public Use
  Company Number: US-ASTRAZENECA-2010SE57777

PATIENT
  Age: 60 Year
  Sex: Male
  Weight: 90.7 kg

DRUGS (50)
  1. NEXIUM [Suspect]
     Indication: GASTROOESOPHAGEAL REFLUX DISEASE
     Route: 048
  2. SEROQUEL [Suspect]
     Route: 048
     Dates: start: 20100423
  3. SEROQUEL [Suspect]
     Dosage: TAKING 300 MG ONE AND 400 MG ONE AT NIGHT
     Route: 048
  4. SEROQUEL [Suspect]
     Route: 048
  5. VIT C [Concomitant]
  6. TOPAMAX [Concomitant]
     Indication: BIPOLAR DISORDER
     Dosage: TWICE A DAY
  7. ATIVAN [Concomitant]
  8. LUMIGAN [Concomitant]
     Dosage: OU, ONE DROP
  9. SEROQUEL [Suspect]
     Indication: SLEEP DISORDER
     Route: 048
     Dates: start: 20100208
  10. SEROQUEL [Suspect]
     Dosage: TAKING 300 MG ONE AND 400 MG ONE AT NIGHT
     Route: 048
  11. SEROQUEL [Suspect]
     Route: 048
  12. GLIPIZIDE [Concomitant]
     Dosage: 2, 5 MG BID
  13. GLICLAZIDE [Concomitant]
  14. DEPAKOTE [Concomitant]
  15. SEROQUEL [Suspect]
     Route: 048
     Dates: start: 20100423
  16. SEROQUEL [Suspect]
     Route: 048
     Dates: start: 20100401
  17. SEROQUEL [Suspect]
     Route: 048
     Dates: start: 20100401
  18. SEROQUEL [Suspect]
     Route: 048
     Dates: start: 20100208
  19. SEROQUEL [Suspect]
     Route: 048
     Dates: start: 20100423
  20. SEROQUEL [Suspect]
     Dosage: TAKING 300 MG ONE AND 400 MG ONE AT NIGHT
     Route: 048
  21. NEXIUM [Suspect]
     Route: 048
  22. SEROQUEL [Suspect]
     Indication: BIPOLAR DISORDER
     Route: 048
     Dates: start: 20100208
  23. SEROQUEL [Suspect]
     Route: 048
     Dates: start: 20100423
  24. SEROQUEL [Suspect]
     Route: 048
     Dates: start: 20100401
  25. SEROQUEL [Suspect]
     Route: 048
  26. FISH OIL [Concomitant]
  27. SEROQUEL [Suspect]
     Route: 048
     Dates: start: 20100423
  28. SEROQUEL [Suspect]
     Route: 048
     Dates: start: 20100423
  29. SEROQUEL [Suspect]
     Route: 048
     Dates: start: 20100401
  30. LISINOPRIL [Concomitant]
     Route: 048
  31. CALCIUM [Concomitant]
  32. LEVOTHYROXINE SODIUM [Concomitant]
  33. SIMVASTATIN [Concomitant]
  34. TOPAMAX [Concomitant]
  35. IRON PILLS [Concomitant]
  36. BUTRIN [Concomitant]
  37. CENTRUM ULTRUM [Concomitant]
  38. SEROQUEL [Suspect]
     Route: 048
     Dates: start: 20100423
  39. SEROQUEL [Suspect]
     Route: 048
  40. LEVOTHYROXINE SODIUM [Concomitant]
  41. LORAZEPAM [Concomitant]
     Indication: BIPOLAR DISORDER
  42. SEROQUEL [Suspect]
     Indication: DEPRESSION
     Route: 048
     Dates: start: 20100208
  43. SEROQUEL [Suspect]
     Route: 048
     Dates: start: 20100423
  44. SEROQUEL [Suspect]
     Dosage: TAKING 300 MG ONE AND 400 MG ONE AT NIGHT
     Route: 048
  45. GLIPIZIDE [Concomitant]
  46. LORAZEPAM [Concomitant]
  47. WELLBUTRIN XL [Concomitant]
  48. EYE DROPS [Concomitant]
  49. IONPILL FERROUS SULFATE [Concomitant]
  50. JANUVIA [Concomitant]

REACTIONS (32)
  - IMPAIRED SELF-CARE [None]
  - BLOOD GLUCOSE INCREASED [None]
  - HEADACHE [None]
  - DYSPNOEA EXERTIONAL [None]
  - POLLAKIURIA [None]
  - INAPPROPRIATE AFFECT [None]
  - DYSPNOEA [None]
  - GAIT DISTURBANCE [None]
  - DIABETES MELLITUS [None]
  - PAIN IN EXTREMITY [None]
  - FAECAL INCONTINENCE [None]
  - PRURITUS [None]
  - NERVOUSNESS [None]
  - ANAEMIA [None]
  - BLOOD GLUCOSE FLUCTUATION [None]
  - ERUCTATION [None]
  - RHINORRHOEA [None]
  - MEMORY IMPAIRMENT [None]
  - MALAISE [None]
  - PSYCHOMOTOR HYPERACTIVITY [None]
  - OFF LABEL USE [None]
  - DRUG DOSE OMISSION [None]
  - WEIGHT INCREASED [None]
  - INSOMNIA [None]
  - DIET REFUSAL [None]
  - CHEILITIS [None]
  - SOMNOLENCE [None]
  - FATIGUE [None]
  - DYSPHAGIA [None]
  - WEIGHT FLUCTUATION [None]
  - NERVOUS SYSTEM DISORDER [None]
  - CONSTIPATION [None]
